FAERS Safety Report 18987563 (Version 2)
Quarter: 2021Q2

REPORT INFORMATION
  Report Type: Report from Study
  Country: FR (occurrence: FR)
  Receive Date: 20210309
  Receipt Date: 20210401
  Transmission Date: 20210717
  Serious: Yes (Other)
  Sender: FDA-Public Use
  Company Number: NVSC2020FR291802

PATIENT
  Sex: Female
  Weight: 63 kg

DRUGS (8)
  1. FLECAINIDE [Concomitant]
     Active Substance: FLECAINIDE
     Indication: CARDIAC FAILURE
     Dosage: 100 MG
     Route: 048
     Dates: start: 20180208
  2. XGEVA [Concomitant]
     Active Substance: DENOSUMAB
     Indication: SKELETAL INJURY
     Dosage: 120 MG
     Route: 058
     Dates: start: 20190627
  3. BYL719 [Suspect]
     Active Substance: ALPELISIB
     Indication: BREAST CANCER METASTATIC
     Dosage: 300 MG, QD
     Route: 048
     Dates: start: 20200717, end: 20201230
  4. ACTONEL COMBI [Concomitant]
     Indication: PRODUCT USED FOR UNKNOWN INDICATION
     Dosage: UNK
     Route: 065
     Dates: start: 20180208
  5. ABASAGLAR [Concomitant]
     Active Substance: INSULIN GLARGINE
     Indication: HYPERGLYCAEMIA
     Dosage: 3 IU, QD
     Route: 058
     Dates: start: 20200221
  6. METFORMINE [Concomitant]
     Active Substance: METFORMIN HYDROCHLORIDE
     Indication: PRODUCT USED FOR UNKNOWN INDICATION
     Route: 065
  7. FULVESTRANT. [Concomitant]
     Active Substance: FULVESTRANT
     Indication: BREAST CANCER
     Dosage: 500 MG, QMO (E/ MONTHLY)
     Route: 030
     Dates: start: 2018
  8. ELIQUIS [Concomitant]
     Active Substance: APIXABAN
     Indication: PRODUCT USED FOR UNKNOWN INDICATION
     Dosage: UNK
     Route: 065
     Dates: start: 20171101

REACTIONS (7)
  - Blood glucose abnormal [Unknown]
  - Fatigue [Unknown]
  - Malaise [Unknown]
  - Blood creatinine abnormal [Unknown]
  - Alveolitis [Unknown]
  - Oedema peripheral [Unknown]
  - Pneumonitis chemical [Not Recovered/Not Resolved]

NARRATIVE: CASE EVENT DATE: 20200724
